FAERS Safety Report 7985468-6 (Version None)
Quarter: 2011Q4

REPORT INFORMATION
  Report Type: 
  Country: None (occurrence: None)
  Receive Date: 20111216
  Receipt Date: 20111213
  Transmission Date: 20120403
  Serious: Yes (Other)
  Sender: FDA-Public Use
  Company Number: DE-BAXTER-2011BH039131

PATIENT
  Sex: Female

DRUGS (1)
  1. ARTISS [Suspect]
     Indication: ABDOMINOPLASTY
     Route: 065

REACTIONS (2)
  - INFLAMMATION [None]
  - FAT NECROSIS [None]
